FAERS Safety Report 11438833 (Version 1)
Quarter: 2015Q3

REPORT INFORMATION
  Report Type: Spontaneous
  Country: US (occurrence: None)
  Receive Date: 20150828
  Receipt Date: 20150828
  Transmission Date: 20151125
  Serious: Yes (Other)
  Sender: FDA-Public Use
  Company Number: 2015-001677

PATIENT
  Sex: Female

DRUGS (1)
  1. DELZICOL [Suspect]
     Active Substance: MESALAMINE
     Route: 048
     Dates: start: 201507, end: 201507

REACTIONS (4)
  - Asthenia [None]
  - Emotional disorder [None]
  - Muscle twitching [None]
  - Suicidal ideation [None]

NARRATIVE: CASE EVENT DATE: 201507
